FAERS Safety Report 13819205 (Version 2)
Quarter: 2017Q3

REPORT INFORMATION
  Report Type: Spontaneous
  Country: US (occurrence: US)
  Receive Date: 20170801
  Receipt Date: 20170807
  Transmission Date: 20171127
  Serious: No
  Sender: FDA-Public Use
  Company Number: US-ASTRAZENECA-2017SE76154

PATIENT
  Age: 765 Month
  Sex: Female
  Weight: 135.2 kg

DRUGS (3)
  1. BYDUREON [Suspect]
     Active Substance: EXENATIDE
     Indication: DIABETES MELLITUS
     Route: 058
     Dates: start: 201608
  2. LANTUS [Concomitant]
     Active Substance: INSULIN GLARGINE
     Dosage: 20.0MG UNKNOWN
     Route: 057
  3. GLIPIZIDE. [Concomitant]
     Active Substance: GLIPIZIDE
     Route: 048

REACTIONS (4)
  - Wrong technique in device usage process [Unknown]
  - Intentional device misuse [Unknown]
  - Underdose [Unknown]
  - Device leakage [Unknown]

NARRATIVE: CASE EVENT DATE: 20170724
